FAERS Safety Report 14846880 (Version 1)
Quarter: 2018Q2

REPORT INFORMATION
  Report Type: Spontaneous
  Country: US (occurrence: US)
  Receive Date: 20180504
  Receipt Date: 20180504
  Transmission Date: 20180711
  Serious: No
  Sender: FDA-Public Use
  Company Number: US-GALDERMA-US18003458

PATIENT
  Age: 13 Year
  Sex: Female

DRUGS (1)
  1. EPIDUO FORTE [Suspect]
     Active Substance: ADAPALENE\BENZOYL PEROXIDE
     Indication: ACNE
     Route: 061
     Dates: start: 20171206, end: 20171209

REACTIONS (6)
  - Dermatitis [Not Recovered/Not Resolved]
  - Rash papular [Not Recovered/Not Resolved]
  - Pain of skin [Recovered/Resolved]
  - Erythema [Not Recovered/Not Resolved]
  - Blister [Recovering/Resolving]
  - Skin haemorrhage [Recovered/Resolved]
